FAERS Safety Report 24618637 (Version 1)
Quarter: 2024Q4

REPORT INFORMATION
  Report Type: Spontaneous
  Country: US (occurrence: None)
  Receive Date: 20241113
  Receipt Date: 20241113
  Transmission Date: 20250115
  Serious: Yes (Hospitalization)
  Sender: Public
  Company Number: None

PATIENT
  Age: 73 Year
  Sex: Male

DRUGS (1)
  1. CAPECITABINE [Suspect]
     Active Substance: CAPECITABINE
     Dates: start: 20240809, end: 20241113

REACTIONS (4)
  - Rhinitis [None]
  - Clostridium difficile colitis [None]
  - Dehydration [None]
  - Refusal of treatment by patient [None]

NARRATIVE: CASE EVENT DATE: 20241003
